FAERS Safety Report 24711120 (Version 1)
Quarter: 2024Q4

REPORT INFORMATION
  Report Type: Spontaneous
  Country: BE (occurrence: BE)
  Receive Date: 20241209
  Receipt Date: 20241209
  Transmission Date: 20250114
  Serious: Yes (Other)
  Sender: TEVA
  Company Number: None

PATIENT
  Age: 5 Year
  Sex: Female

DRUGS (1)
  1. RISPERIDONE [Suspect]
     Active Substance: RISPERIDONE
     Indication: Product used for unknown indication
     Dosage: TIME INTERVAL: TOTAL: 2.50 MG, ONCE, RISPERIDON
     Route: 048

REACTIONS (3)
  - Malaise [Recovered/Resolved]
  - Vertigo [Recovered/Resolved]
  - Overdose [Recovered/Resolved]
